FAERS Safety Report 7086531-7 (Version None)
Quarter: 2010Q4

REPORT INFORMATION
  Report Type: 
  Country: None (occurrence: None)
  Receive Date: 20101105
  Receipt Date: 20101028
  Transmission Date: 20110411
  Serious: Yes (Hospitalization)
  Sender: FDA-Public Use
  Company Number: US-ABBOTT-10P-163-0682202-00

PATIENT
  Age: 63 Year
  Sex: Male

DRUGS (6)
  1. VICODIN [Suspect]
     Indication: PAIN
  2. DEPAKOTE [Suspect]
     Indication: CONVULSION
     Route: 065
  3. DEPAKOTE [Suspect]
     Indication: HAEMORRHAGE
  4. DEPAKOTE [Suspect]
     Indication: HEADACHE
  5. ATIVAN [Suspect]
     Indication: ANXIETY
  6. KEPPRA [Concomitant]
     Indication: PRODUCT USED FOR UNKNOWN INDICATION

REACTIONS (6)
  - DEPRESSED LEVEL OF CONSCIOUSNESS [None]
  - DISORIENTATION [None]
  - GAIT DISTURBANCE [None]
  - HYPERAMMONAEMIA [None]
  - INCONTINENCE [None]
  - METABOLIC ENCEPHALOPATHY [None]
